FAERS Safety Report 6497618-1 (Version None)
Quarter: 2009Q4

REPORT INFORMATION
  Report Type: 
  Country: None (occurrence: None)
  Receive Date: 20091211
  Receipt Date: 20091204
  Transmission Date: 20100525
  Serious: Yes (Hospitalization, Other)
  Sender: FDA-Public Use
  Company Number: ADR53002009

PATIENT
  Age: 33 Year
  Sex: Male

DRUGS (2)
  1. RISPERIDONE [Suspect]
     Indication: SCHIZOPHRENIA
     Dosage: 2 MG
  2. SERTRALINE HCL [Suspect]
     Indication: SCHIZOPHRENIA
     Dosage: 50MG

REACTIONS (22)
  - AGITATION [None]
  - ALANINE AMINOTRANSFERASE INCREASED [None]
  - BILIARY TRACT DISORDER [None]
  - BIOPSY LIVER ABNORMAL [None]
  - BLOOD ALBUMIN ABNORMAL [None]
  - BLOOD ALKALINE PHOSPHATASE ABNORMAL [None]
  - CLUBBING [None]
  - EOSINOPHILIC PNEUMONIA [None]
  - HAEMOGLOBIN ABNORMAL [None]
  - HIV INFECTION [None]
  - INTERSTITIAL LUNG DISEASE [None]
  - LIVER FUNCTION TEST ABNORMAL [None]
  - LUNG CONSOLIDATION [None]
  - OCULAR ICTERUS [None]
  - ORGANISING PNEUMONIA [None]
  - PAIN IN EXTREMITY [None]
  - PNEUMOTHORAX [None]
  - PULMONARY FIBROSIS [None]
  - RESPIRATORY FAILURE [None]
  - SEPSIS [None]
  - VANISHING BILE DUCT SYNDROME [None]
  - VOMITING [None]
